FAERS Safety Report 4577231-3 (Version None)
Quarter: 2005Q1

REPORT INFORMATION
  Report Type: 
  Country: None (occurrence: None)
  Receive Date: 20050209
  Receipt Date: 20050126
  Transmission Date: 20050727
  Serious: Yes (Death)
  Sender: FDA-Public Use
  Company Number: 2004AL000924

PATIENT
  Age: 48 Year
  Sex: Female

DRUGS (9)
  1. THEOPHYLLINE ELIXIR LIQUID [Suspect]
     Dosage: PO
     Route: 048
  2. DESIPRAMIDE HCL [Suspect]
     Dosage: PO
     Route: 048
  3. CYCLOBENZAPRINE [Suspect]
     Dosage: PO
     Route: 048
  4. FUROSEMIDE [Suspect]
     Dosage: PO
     Route: 048
  5. NAPROXEN [Concomitant]
  6. SUCRALFATE [Concomitant]
  7. ZOLPIDEM TARTRATE [Concomitant]
  8. OMEPRAZOLE [Concomitant]
  9. ESTROGENS CONJUGATED W/MEDROXYPROGESTERONE [Concomitant]

REACTIONS (12)
  - BLOOD CREATINE INCREASED [None]
  - BLOOD CREATINE PHOSPHOKINASE INCREASED [None]
  - BLOOD UREA INCREASED [None]
  - CHEST X-RAY ABNORMAL [None]
  - COMA [None]
  - COMPLETED SUICIDE [None]
  - DRUG LEVEL ABOVE THERAPEUTIC [None]
  - DYSKINESIA [None]
  - METABOLIC ACIDOSIS [None]
  - TACHYCARDIA [None]
  - TACHYPNOEA [None]
  - VASCULAR RESISTANCE SYSTEMIC DECREASED [None]
